FAERS Safety Report 10623427 (Version 3)
Quarter: 2015Q2

REPORT INFORMATION
  Report Type: Spontaneous
  Country: US (occurrence: US)
  Receive Date: 20141203
  Receipt Date: 20150521
  Transmission Date: 20150821
  Serious: Yes (Hospitalization, Other)
  Sender: FDA-Public Use
  Company Number: US-BAYER-2014-178338

PATIENT
  Age: 21 Year
  Sex: Female
  Weight: 93.42 kg

DRUGS (10)
  1. ZOFRAN [Concomitant]
     Active Substance: ONDANSETRON HYDROCHLORIDE
  2. GLUCOPHAGE [Concomitant]
     Active Substance: METFORMIN HYDROCHLORIDE
  3. MONISTAT [Concomitant]
     Active Substance: MICONAZOLE NITRATE
  4. GLUMETZA [Concomitant]
     Active Substance: METFORMIN HYDROCHLORIDE
  5. METFORMIN [Concomitant]
     Active Substance: METFORMIN HYDROCHLORIDE
     Indication: DIABETES MELLITUS
     Dosage: UNK
     Route: 048
     Dates: start: 200705
  6. MIRENA [Suspect]
     Active Substance: LEVONORGESTREL
     Indication: CONTRACEPTION
     Dosage: 20 MCG/24HR, CONT
     Route: 015
     Dates: start: 20090626, end: 20121106
  7. ATIVAN [Concomitant]
     Active Substance: LORAZEPAM
  8. DILAUDID [Concomitant]
     Active Substance: HYDROMORPHONE HYDROCHLORIDE
  9. LEXAPRO [Concomitant]
     Active Substance: ESCITALOPRAM OXALATE
  10. ZOLOFT [Concomitant]
     Active Substance: SERTRALINE HYDROCHLORIDE

REACTIONS (17)
  - Internal injury [None]
  - Device use error [None]
  - Depression [None]
  - Emotional distress [None]
  - Device dislocation [None]
  - Abdominal pain [None]
  - Appendicectomy [None]
  - Device dislocation [None]
  - Genital haemorrhage [None]
  - Fear [None]
  - Device expulsion [None]
  - Anxiety [None]
  - Pelvic pain [None]
  - Uterine perforation [None]
  - Medical device discomfort [None]
  - Depressed mood [None]
  - Injury [None]

NARRATIVE: CASE EVENT DATE: 200906
